FAERS Safety Report 16935918 (Version 2)
Quarter: 2019Q4

REPORT INFORMATION
  Report Type: Spontaneous
  Country: IT (occurrence: IT)
  Receive Date: 20191018
  Receipt Date: 20191218
  Transmission Date: 20200122
  Serious: Yes (Hospitalization)
  Sender: FDA-Public Use
  Company Number: IT-ASTRAZENECA-2019SF45614

PATIENT
  Age: 30 Year
  Sex: Female

DRUGS (4)
  1. QUETIAPINE. [Suspect]
     Active Substance: QUETIAPINE
     Indication: SUBSTANCE ABUSE
     Dosage: 3.0G UNKNOWN
     Route: 048
     Dates: start: 20190531, end: 20190531
  2. LITHIUM. [Concomitant]
     Active Substance: LITHIUM
     Dates: start: 20190528
  3. BROTIZOLAM [Concomitant]
     Active Substance: BROTIZOLAM
     Route: 048
     Dates: start: 20190528
  4. DULOXETINE HYDROCHLORIDE. [Concomitant]
     Active Substance: DULOXETINE HYDROCHLORIDE
     Dates: start: 20190528

REACTIONS (2)
  - Sopor [Unknown]
  - Substance abuse [Unknown]

NARRATIVE: CASE EVENT DATE: 20190531
